FAERS Safety Report 14289758 (Version 2)
Quarter: 2018Q1

REPORT INFORMATION
  Report Type: Report from Study
  Country: US (occurrence: US)
  Receive Date: 20171215
  Receipt Date: 20180111
  Transmission Date: 20180509
  Serious: Yes (Hospitalization, Other)
  Sender: FDA-Public Use
  Company Number: US-GILEAD-2017-0309974

PATIENT
  Age: 45 Year
  Sex: Female

DRUGS (2)
  1. ADCIRCA [Concomitant]
     Active Substance: TADALAFIL
  2. AMBRISENTAN [Suspect]
     Active Substance: AMBRISENTAN
     Indication: PRODUCT USED FOR UNKNOWN INDICATION
     Dosage: 10 MG, QD
     Route: 065
     Dates: start: 20170821

REACTIONS (4)
  - Haemorrhoids [Unknown]
  - Polyp [Unknown]
  - Gastrointestinal haemorrhage [Unknown]
  - Haemoglobin decreased [Unknown]

NARRATIVE: CASE EVENT DATE: 201711
